FAERS Safety Report 4459475-4 (Version None)
Quarter: 2004Q3

REPORT INFORMATION
  Report Type: 
  Country: None (occurrence: None)
  Receive Date: 20040927
  Receipt Date: 20040817
  Transmission Date: 20050211
  Serious: Yes (Life-Threatening, Other)
  Sender: FDA-Public Use
  Company Number: US-ABBOTT-04P-163-0271107-00

PATIENT
  Sex: Female

DRUGS (5)
  1. VICODIN [Suspect]
     Indication: DRUG USE FOR UNKNOWN INDICATION
     Dosage: 5MG/500MG
     Route: 048
     Dates: start: 20040729, end: 20040801
  2. VALACYCLOVIR HCL [Suspect]
     Indication: DRUG USE FOR UNKNOWN INDICATION
     Route: 048
     Dates: start: 20040729, end: 20040801
  3. BLINDED VACCINE TRIAL MEDICATION [Suspect]
     Indication: ANTIVIRAL PROPHYLAXIS
     Route: 030
     Dates: start: 20040330, end: 20040330
  4. BLINDED VACCINE TRIAL MEDICATION [Suspect]
     Route: 030
     Dates: start: 20040427, end: 20040427
  5. NAPROXEN SODIUM [Concomitant]
     Indication: DRUG USE FOR UNKNOWN INDICATION
     Dates: start: 20040727, end: 20040728

REACTIONS (8)
  - ANAPHYLACTIC REACTION [None]
  - DYSPHAGIA [None]
  - HERPES ZOSTER [None]
  - HERPES ZOSTER OPHTHALMIC [None]
  - PAIN IN EXTREMITY [None]
  - PALMAR ERYTHEMA [None]
  - SWOLLEN TONGUE [None]
  - VISION BLURRED [None]
